FAERS Safety Report 11825388 (Version 1)
Quarter: 2015Q4

REPORT INFORMATION
  Report Type: Report from Study
  Country: US (occurrence: US)
  Receive Date: 20151211
  Receipt Date: 20151211
  Transmission Date: 20160305
  Serious: Yes (Hospitalization)
  Sender: FDA-Public Use
  Company Number: US-TEVA-617004USA

PATIENT
  Age: 46 Year
  Sex: Female
  Weight: 89.3 kg

DRUGS (22)
  1. DOXORUBICIN [Suspect]
     Active Substance: DOXORUBICIN
     Indication: TRIPLE NEGATIVE BREAST CANCER
     Dosage: DAY 1 OF FOUR 14-DAY CYCLES DURING CHEMOTHERAPY SEGMENT 2
     Route: 042
     Dates: start: 20150625, end: 20150625
  2. PACLITAXEL. [Suspect]
     Active Substance: PACLITAXEL
     Indication: TRIPLE NEGATIVE BREAST CANCER
     Dosage: DAY 1 OF 12 WEEKLY CYCLES
     Route: 042
     Dates: start: 20150327, end: 20150501
  3. CYCLOPHOSPHAMIDE. [Suspect]
     Active Substance: CYCLOPHOSPHAMIDE
     Dosage: DAY 1 OF FOUR 14-DAY
     Route: 042
     Dates: start: 20150625, end: 20150625
  4. DEXAMETHASONE. [Concomitant]
     Active Substance: DEXAMETHASONE
     Dosage: PRIOR TO AC
     Route: 042
     Dates: start: 20150625
  5. ABT-888 [Suspect]
     Active Substance: VELIPARIB
     Dosage: CHEMOTHERAPY SEGMENT 1
     Route: 048
     Dates: start: 20150327, end: 20150618
  6. ALOXI [Concomitant]
     Active Substance: PALONOSETRON HYDROCHLORIDE
     Indication: PROPHYLAXIS OF NAUSEA AND VOMITING
     Route: 042
  7. POTASSIUM [Concomitant]
     Active Substance: POTASSIUM
     Indication: HYPOKALAEMIA
     Route: 048
     Dates: start: 20150621
  8. XANAX [Concomitant]
     Active Substance: ALPRAZOLAM
     Indication: ANXIETY
     Dosage: AS REQUIRED
     Route: 048
     Dates: start: 20150323
  9. PACLITAXEL. [Suspect]
     Active Substance: PACLITAXEL
     Dosage: DAY 1 OF 12 WEEKLY CYCLES
     Route: 042
     Dates: start: 20150508, end: 20150508
  10. PACLITAXEL. [Suspect]
     Active Substance: PACLITAXEL
     Dosage: DAY 1 OF 12 WEEKLY CYCLES
     Route: 042
     Dates: start: 20150522, end: 20150529
  11. DEXAMETHASONE. [Concomitant]
     Active Substance: DEXAMETHASONE
     Indication: ANTIEMETIC SUPPORTIVE CARE
     Dosage: DAYS 2 AND 3 AFTER CHEMO
     Route: 048
     Dates: start: 20150328
  12. IMODIUM [Concomitant]
     Active Substance: LOPERAMIDE HYDROCHLORIDE
     Indication: DIARRHOEA
     Dosage: AS REQUIRED
     Route: 048
     Dates: start: 20150408, end: 20150423
  13. V-R VITAMIN C [Concomitant]
     Indication: JOINT INJURY
     Dosage: 1000 MILLIGRAM DAILY;
     Route: 048
     Dates: start: 20150304
  14. DOXORUBICIN [Suspect]
     Active Substance: DOXORUBICIN
     Dosage: DAY 1 OF FOUR 14-DAY CYCLES DURING CHEMOTHERAPY SEGMENT 2
     Route: 042
     Dates: start: 20150710
  15. CARBOPLATIN. [Suspect]
     Active Substance: CARBOPLATIN
     Indication: TRIPLE NEGATIVE BREAST CANCER
     Dosage: DAY 1 OF FOUR 21-DAY CYCLES DURING CHEMOTHERAPY SEGMENT 1
     Route: 042
     Dates: start: 20150327, end: 20150529
  16. DEXAMETHASONE. [Concomitant]
     Active Substance: DEXAMETHASONE
     Indication: PROPHYLAXIS
     Dosage: WITH CHEMO
     Route: 042
  17. CYCLOPHOSPHAMIDE. [Suspect]
     Active Substance: CYCLOPHOSPHAMIDE
     Dosage: DAY 1 OF FOUR 14-DAY
     Route: 042
     Dates: start: 20150710
  18. EMEND [Concomitant]
     Active Substance: APREPITANT
     Indication: ANTIEMETIC SUPPORTIVE CARE
     Dosage: PRIOR TO AC INFUSION
     Route: 042
     Dates: start: 20150625
  19. TRAZODONE [Concomitant]
     Active Substance: TRAZODONE HYDROCHLORIDE
     Indication: INSOMNIA
     Dosage: AS REQUIRED
     Route: 048
     Dates: start: 20150403, end: 20150405
  20. POTASSIUM [Concomitant]
     Active Substance: POTASSIUM
     Indication: DIARRHOEA
     Route: 048
     Dates: start: 20150619, end: 20150620
  21. PROTONIX [Concomitant]
     Active Substance: PANTOPRAZOLE SODIUM
     Indication: DYSPEPSIA
     Dosage: 40 MILLIGRAM DAILY;
     Route: 048
     Dates: start: 20150404
  22. NEULASTA [Concomitant]
     Active Substance: PEGFILGRASTIM
     Indication: INFECTION PROPHYLAXIS
     Dosage: 24 HOURS AFTER AC ADMINISTRATION
     Route: 058
     Dates: start: 20150626

REACTIONS (1)
  - Febrile neutropenia [Recovered/Resolved]

NARRATIVE: CASE EVENT DATE: 20150716
